FAERS Safety Report 5619628-6 (Version None)
Quarter: 2008Q1

REPORT INFORMATION
  Report Type: 
  Country: None (occurrence: None)
  Receive Date: 20080205
  Receipt Date: 20080205
  Transmission Date: 20080703
  Serious: Yes (Other)
  Sender: FDA-Public Use
  Company Number: None

PATIENT
  Age: 49 Year
  Sex: Female
  Weight: 77.1115 kg

DRUGS (2)
  1. TRIMETHOPRIM [Suspect]
     Indication: URINARY TRACT INFECTION
     Dosage: 100 MG TAKE 1 BEFORE BED PO
     Route: 048
     Dates: start: 20080106, end: 20080108
  2. TRIMETHOPRIM [Suspect]
     Indication: URINARY TRACT INFECTION
     Dosage: 100 MG TAKE 1 BEFORE BED PO
     Route: 048
     Dates: start: 20080122, end: 20080123

REACTIONS (4)
  - FUNGAL SKIN INFECTION [None]
  - PHARYNGEAL OEDEMA [None]
  - VULVAL HAEMORRHAGE [None]
  - VULVOVAGINAL MYCOTIC INFECTION [None]
